FAERS Safety Report 15955213 (Version 1)
Quarter: 2019Q1

REPORT INFORMATION
  Report Type: Spontaneous
  Country: US (occurrence: US)
  Receive Date: 20190121
  Receipt Date: 20190121
  Transmission Date: 20190417
  Serious: No
  Sender: FDA-Public Use
  Company Number: None

PATIENT
  Age: 75 Year
  Sex: Female

DRUGS (1)
  1. PROLIA [Suspect]
     Active Substance: DENOSUMAB
     Route: 058
     Dates: start: 201802

REACTIONS (4)
  - Synovial cyst [None]
  - Spinal disorder [None]
  - Cyst [None]
  - Back pain [None]

NARRATIVE: CASE EVENT DATE: 20190121
